FAERS Safety Report 9407827 (Version 1)
Quarter: 2013Q3

REPORT INFORMATION
  Report Type: Spontaneous
  Country: US (occurrence: US)
  Receive Date: 20130718
  Receipt Date: 20130718
  Transmission Date: 20140515
  Serious: Yes (Other)
  Sender: FDA-Public Use
  Company Number: US-MYLANLABS-2013S1015162

PATIENT
  Age: 17 Month
  Sex: 0
  Weight: 9.5 kg

DRUGS (1)
  1. MELPHALAN [Suspect]
     Indication: RETINOBLASTOMA
     Dosage: 4MG PER EYE
     Route: 013

REACTIONS (2)
  - Chorioretinal atrophy [Unknown]
  - Chorioretinal atrophy [Unknown]
